FAERS Safety Report 9690389 (Version 1)
Quarter: 2013Q4

REPORT INFORMATION
  Report Type: Spontaneous
  Country: DE (occurrence: None)
  Receive Date: 20131113
  Receipt Date: 20131113
  Transmission Date: 20140711
  Serious: Yes (Other)
  Sender: FDA-Public Use
  Company Number: AUR-APL-2013-09430

PATIENT
  Age: 73 Year
  Sex: Female
  Weight: 165 kg

DRUGS (2)
  1. MIRTAZAPINE [Suspect]
     Indication: PRODUCT USED FOR UNKNOWN INDICATION
     Route: 048
     Dates: start: 20121105
  2. GELONIDA [Suspect]
     Indication: PAIN
     Dosage: EVERY FEW DAYS A PACKAGE WITH 20 TABLETS 21 PACKAGES ORAL
     Route: 048
     Dates: start: 2009, end: 2009

REACTIONS (1)
  - Drug ineffective [None]
